FAERS Safety Report 5833615-4 (Version None)
Quarter: 2008Q3

REPORT INFORMATION
  Report Type: 
  Country: None (occurrence: None)
  Receive Date: 20080805
  Receipt Date: 20080728
  Transmission Date: 20090109
  Serious: Yes (Other)
  Sender: FDA-Public Use
  Company Number: US-AVENTIS-200812787US

PATIENT
  Sex: Female

DRUGS (3)
  1. LANTUS [Suspect]
     Route: 058
     Dates: start: 20080301, end: 20080309
  2. HUMALOG [Concomitant]
     Dosage: DOSE: 4-6 UNITS AT MEALS
  3. ULTRALENTE INSULIN [Concomitant]

REACTIONS (4)
  - ERYTHEMA [None]
  - INJECTION SITE NECROSIS [None]
  - SCAB [None]
  - SKIN ULCER [None]
